FAERS Safety Report 26120340 (Version 1)
Quarter: 2025Q4

REPORT INFORMATION
  Report Type: Report from Study
  Country: TW (occurrence: TW)
  Receive Date: 20251204
  Receipt Date: 20251204
  Transmission Date: 20260118
  Serious: Yes (Life-Threatening, Hospitalization, Other)
  Sender: UNITED THERAPEUTICS
  Company Number: TW-UNITED THERAPEUTICS-UNT-2025-033936

PATIENT
  Age: 38 Year
  Sex: Female

DRUGS (3)
  1. TREPROSTINIL SODIUM [Suspect]
     Active Substance: TREPROSTINIL SODIUM
     Indication: Heart disease congenital
     Dosage: 0.086 ?G/KG (PUMP RATE 4.6 UNIT/HOUR), CONTINUING
  2. TREPROSTINIL SODIUM [Suspect]
     Active Substance: TREPROSTINIL SODIUM
     Indication: Pulmonary hypertension
     Dosage: 0.080 ?G/KG (PUMP RATE 4.3 UNIT/HOUR), CONTINUING
  3. TREPROSTINIL SODIUM [Suspect]
     Active Substance: TREPROSTINIL SODIUM
     Dosage: UNK, CONTINUING

REACTIONS (5)
  - Dyspnoea [Unknown]
  - Anuria [Unknown]
  - Arrhythmia [Recovered/Resolved]
  - Ascites [Recovered/Resolved]
  - Hypotension [Unknown]
